FAERS Safety Report 6649169-9 (Version None)
Quarter: 2010Q1

REPORT INFORMATION
  Report Type: 
  Country: None (occurrence: None)
  Receive Date: 20100324
  Receipt Date: 20100318
  Transmission Date: 20100710
  Serious: Yes (Other)
  Sender: FDA-Public Use
  Company Number: A0851665A

PATIENT
  Age: 54 Year
  Sex: Female

DRUGS (2)
  1. ADVAIR DISKUS 100/50 [Suspect]
     Indication: CHRONIC OBSTRUCTIVE PULMONARY DISEASE
     Route: 055
  2. PREDNISONE [Suspect]

REACTIONS (4)
  - INTERVERTEBRAL DISC PROTRUSION [None]
  - INTRAOCULAR LENS IMPLANT [None]
  - OSTEOPOROSIS [None]
  - PNEUMONIA [None]
